FAERS Safety Report 8461707-2 (Version None)
Quarter: 2012Q2

REPORT INFORMATION
  Report Type: 
  Country: None (occurrence: None)
  Receive Date: 20120625
  Receipt Date: 20120621
  Transmission Date: 20120825
  Serious: Yes (Other)
  Sender: FDA-Public Use
  Company Number: PHHY2012FR053630

PATIENT
  Sex: Female

DRUGS (2)
  1. ARIMIDEX [Suspect]
     Indication: BREAST CANCER
     Dosage: UNK UKN, UNK
     Dates: start: 20110501, end: 20111101
  2. FEMARA [Suspect]
     Indication: BREAST CANCER
     Dosage: UNK UKN, UNK
     Dates: start: 20110501, end: 20120201

REACTIONS (1)
  - VISUAL ACUITY REDUCED [None]
